FAERS Safety Report 9431732 (Version 1)
Quarter: 2013Q3

REPORT INFORMATION
  Report Type: Spontaneous
  Country: GB (occurrence: GB)
  Receive Date: 20130731
  Receipt Date: 20130731
  Transmission Date: 20140515
  Serious: Yes (Other)
  Sender: FDA-Public Use
  Company Number: GB-RANBAXY-2013R1-71725

PATIENT
  Age: 59 Year
  Sex: Male
  Weight: 99.5 kg

DRUGS (9)
  1. NAPROXEN [Suspect]
     Indication: PAIN
     Dosage: 500 MG, BID
     Route: 048
  2. CHLORAMPHENICOL [Suspect]
     Indication: PRODUCT USED FOR UNKNOWN INDICATION
     Route: 065
  3. MABTHERA [Suspect]
     Indication: RHEUMATOID ARTHRITIS
     Dosage: 1000MG, 2 INFUSIONS, 2 WEEKS APART
     Route: 042
     Dates: start: 20130515
  4. MABTHERA [Suspect]
     Indication: RHEUMATOID ARTHRITIS
     Dosage: UNK
     Route: 065
     Dates: start: 20130528
  5. METOJECT [Suspect]
     Indication: RHEUMATOID ARTHRITIS
     Dosage: 30 MG, 1/WEEK
     Route: 058
     Dates: end: 20130529
  6. CODEINE [Concomitant]
     Indication: PRODUCT USED FOR UNKNOWN INDICATION
     Dosage: 15 MG, PRN
     Route: 065
  7. FOLIC ACID [Concomitant]
     Indication: PRODUCT USED FOR UNKNOWN INDICATION
     Route: 065
  8. OMEPRAZOLE [Concomitant]
     Indication: PROPHYLAXIS
     Route: 048
  9. PARACETAMOL [Concomitant]
     Indication: PAIN
     Route: 065

REACTIONS (1)
  - Diarrhoea [Not Recovered/Not Resolved]
